FAERS Safety Report 12230958 (Version 1)
Quarter: 2016Q2

REPORT INFORMATION
  Report Type: Spontaneous
  Country: CZ (occurrence: CZ)
  Receive Date: 20160401
  Receipt Date: 20160401
  Transmission Date: 20160815
  Serious: Yes (Other)
  Sender: FDA-Public Use
  Company Number: PHHY2016CZ042537

PATIENT
  Sex: Female

DRUGS (3)
  1. VINCRISTINE [Suspect]
     Active Substance: VINCRISTINE
     Indication: MEDULLOBLASTOMA
     Dosage: 1.5 MG/M2, UNK
     Route: 065
  2. METHOTREXATE [Suspect]
     Active Substance: METHOTREXATE
     Indication: MEDULLOBLASTOMA
     Dosage: 2 MG, TID
     Route: 016
  3. DOXORUBICIN [Suspect]
     Active Substance: DOXORUBICIN
     Indication: MEDULLOBLASTOMA
     Dosage: 70 MG/M2, UNK
     Route: 041

REACTIONS (6)
  - Skin toxicity [Unknown]
  - Medulloblastoma recurrent [Unknown]
  - Haemodynamic instability [Unknown]
  - Sepsis [Unknown]
  - Mucosal toxicity [Unknown]
  - Pancytopenia [Unknown]
